FAERS Safety Report 11118197 (Version 1)
Quarter: 2015Q2

REPORT INFORMATION
  Report Type: Spontaneous
  Country: US (occurrence: None)
  Receive Date: 20150515
  Receipt Date: 20150515
  Transmission Date: 20150821
  Serious: Yes (Other)
  Sender: FDA-Public Use
  Company Number: None

PATIENT
  Age: 28 Year
  Sex: Female
  Weight: 83.92 kg

DRUGS (3)
  1. SUBOXONE [Suspect]
     Active Substance: BUPRENORPHINE HYDROCHLORIDE\NALOXONE HYDROCHLORIDE
     Indication: MYALGIA
     Dosage: 4-1 BID SUBLINGUAL
     Route: 060
     Dates: start: 20150105, end: 20150113
  2. SUBOXONE [Suspect]
     Active Substance: BUPRENORPHINE HYDROCHLORIDE\NALOXONE HYDROCHLORIDE
     Indication: DRUG DEPENDENCE
     Dosage: 4-1 BID SUBLINGUAL
     Route: 060
     Dates: start: 20150105, end: 20150113
  3. SUBOXONE [Suspect]
     Active Substance: BUPRENORPHINE HYDROCHLORIDE\NALOXONE HYDROCHLORIDE
     Indication: MYOSITIS
     Dosage: 4-1 BID SUBLINGUAL
     Route: 060
     Dates: start: 20150105, end: 20150113

REACTIONS (5)
  - Feeling abnormal [None]
  - Nausea [None]
  - Euphoric mood [None]
  - Headache [None]
  - Pruritus [None]

NARRATIVE: CASE EVENT DATE: 20150113
